FAERS Safety Report 5065796-7 (Version None)
Quarter: 2006Q3

REPORT INFORMATION
  Report Type: 
  Country: None (occurrence: None)
  Receive Date: 20060731
  Receipt Date: 20060718
  Transmission Date: 20061208
  Serious: Yes (Other)
  Sender: FDA-Public Use
  Company Number: 2006GB01242

PATIENT
  Sex: Female

DRUGS (1)
  1. LIDOCAINE [Suspect]
     Route: 061

REACTIONS (2)
  - APPLICATION SITE IRRITATION [None]
  - DELIRIUM [None]
